FAERS Safety Report 7460997-2 (Version None)
Quarter: 2011Q2

REPORT INFORMATION
  Report Type: 
  Country: None (occurrence: None)
  Receive Date: 20110505
  Receipt Date: 20110425
  Transmission Date: 20111010
  Serious: Yes (Hospitalization, Other)
  Sender: FDA-Public Use
  Company Number: US-ELI_LILLY_AND_COMPANY-US201010006286

PATIENT
  Sex: Female

DRUGS (10)
  1. CITRACAL [Concomitant]
  2. PRILOSEC [Concomitant]
     Dosage: UNK, EACH MORNING
  3. VITAMIN C [Concomitant]
  4. PLAQUENIL [Concomitant]
  5. FORTEO [Suspect]
     Dosage: 20 UG, QD
  6. PREDNISOLONE [Concomitant]
  7. VITAMIN D [Concomitant]
  8. FORTEO [Suspect]
     Indication: OSTEOPOROSIS
     Dosage: 20 UG, DAILY (1/D)
     Dates: start: 20100708
  9. FORTEO [Suspect]
     Dosage: 20 UG, DAILY (1/D)
  10. DARVOCET [Concomitant]
     Indication: PAIN

REACTIONS (18)
  - DIARRHOEA [None]
  - JOINT CREPITATION [None]
  - BACK INJURY [None]
  - DISCOMFORT [None]
  - CONTUSION [None]
  - FATIGUE [None]
  - GAIT DISTURBANCE [None]
  - NECK PAIN [None]
  - CONSTIPATION [None]
  - BODY TEMPERATURE INCREASED [None]
  - PNEUMONIA [None]
  - INJECTION SITE ERYTHEMA [None]
  - SPINAL COMPRESSION FRACTURE [None]
  - MUSCULOSKELETAL PAIN [None]
  - BACK PAIN [None]
  - PAIN [None]
  - JOINT ARTHROPLASTY [None]
  - HEADACHE [None]
